FAERS Safety Report 5709432-2 (Version None)
Quarter: 2008Q2

REPORT INFORMATION
  Report Type: 
  Country: None (occurrence: None)
  Receive Date: 20080417
  Receipt Date: 20080417
  Transmission Date: 20081010
  Serious: Yes (Hospitalization)
  Sender: FDA-Public Use
  Company Number: None

PATIENT
  Age: 53 Year
  Sex: Male

DRUGS (2)
  1. STAVUDINE [Suspect]
     Indication: PANCREATITIS
     Dates: start: 20080226, end: 20080229
  2. EMTRICITABINE [Suspect]
     Dosage: PO
     Route: 048
     Dates: start: 20080226

REACTIONS (1)
  - PANCREATITIS [None]
